FAERS Safety Report 9649550 (Version 1)
Quarter: 2013Q4

REPORT INFORMATION
  Report Type: Spontaneous
  Country: US (occurrence: US)
  Receive Date: 20131028
  Receipt Date: 20131028
  Transmission Date: 20140711
  Serious: No
  Sender: FDA-Public Use
  Company Number: US-009507513-1310USA009251

PATIENT
  Sex: Female

DRUGS (7)
  1. JANUVIA [Suspect]
     Indication: DIABETES MELLITUS
     Dosage: 100 MG, UNK
     Route: 048
     Dates: start: 2009
  2. METFORMIN [Concomitant]
  3. INSULIN [Concomitant]
  4. GLIMEPIRIDE [Concomitant]
  5. PROZAC [Concomitant]
  6. ERYTHROMYCIN [Concomitant]
  7. PENICILLIN (UNSPECIFIED) [Concomitant]

REACTIONS (9)
  - Anal haemorrhage [Unknown]
  - Anorectal discomfort [Unknown]
  - Parosmia [Unknown]
  - Abdominal pain upper [Unknown]
  - Rash [Unknown]
  - Diarrhoea [Unknown]
  - Constipation [Unknown]
  - Drug effect incomplete [Unknown]
  - Inappropriate schedule of drug administration [Unknown]
